FAERS Safety Report 4342318-7 (Version None)
Quarter: 2004Q2

REPORT INFORMATION
  Report Type: 
  Country: None (occurrence: None)
  Receive Date: 20040413
  Receipt Date: 20040329
  Transmission Date: 20050107
  Serious: Yes (Other)
  Sender: FDA-Public Use
  Company Number: T04-GER-01460-01

PATIENT
  Age: 43 Year
  Sex: Female

DRUGS (3)
  1. CIPRALEX (ESCITALOPRAM) [Suspect]
     Indication: DEPRESSION
     Dosage: 10 MG QD PO
     Route: 048
     Dates: start: 20030924, end: 20030927
  2. MAXALT [Concomitant]
  3. FORADIL P (FORMOTEROL FUMURATE) [Concomitant]

REACTIONS (3)
  - AGITATION [None]
  - RESTLESSNESS [None]
  - SEROTONIN SYNDROME [None]
